FAERS Safety Report 25254444 (Version 1)
Quarter: 2025Q2

REPORT INFORMATION
  Report Type: Spontaneous
  Country: CN (occurrence: CN)
  Receive Date: 20250430
  Receipt Date: 20250430
  Transmission Date: 20250717
  Serious: Yes (Other)
  Sender: JOHNSON AND JOHNSON
  Company Number: CN-JNJFOC-20250434594

PATIENT
  Age: 55 Year
  Sex: Male
  Weight: 72.5 kg

DRUGS (1)
  1. TOPAMAX [Suspect]
     Active Substance: TOPIRAMATE
     Indication: Seizure prophylaxis
     Route: 048
     Dates: start: 20250201, end: 20250415

REACTIONS (3)
  - Craniotomy [Unknown]
  - Epilepsy [Unknown]
  - Acidosis [Recovering/Resolving]

NARRATIVE: CASE EVENT DATE: 20250301
